FAERS Safety Report 14976018 (Version 1)
Quarter: 2018Q2

REPORT INFORMATION
  Report Type: Spontaneous
  Country: US (occurrence: US)
  Receive Date: 20180605
  Receipt Date: 20180605
  Transmission Date: 20180711
  Serious: Yes (Hospitalization)
  Sender: FDA-Public Use
  Company Number: US-ROCHE-2042375

PATIENT
  Sex: Male
  Weight: 102.15 kg

DRUGS (17)
  1. PREDNISONE. [Concomitant]
     Active Substance: PREDNISONE
     Route: 065
     Dates: start: 20171211
  2. ASA [Concomitant]
     Active Substance: ASPIRIN
     Route: 065
     Dates: start: 20171206
  3. PREDNISONE. [Concomitant]
     Active Substance: PREDNISONE
     Route: 065
  4. LOSARTAN. [Concomitant]
     Active Substance: LOSARTAN
     Route: 065
     Dates: start: 20171101
  5. ACTEMRA [Suspect]
     Active Substance: TOCILIZUMAB
     Indication: TEMPORAL ARTERITIS
     Dosage: 449.1MG(22.5 ML);UNKNOWN
     Route: 042
     Dates: start: 20170828
  6. ASA [Concomitant]
     Active Substance: ASPIRIN
     Route: 065
     Dates: start: 20171101
  7. ESOMEPRAZOLE [Concomitant]
     Active Substance: ESOMEPRAZOLE
     Route: 065
     Dates: start: 20171211
  8. PREDNISONE. [Concomitant]
     Active Substance: PREDNISONE
     Route: 065
     Dates: start: 20171101
  9. PREDNISONE. [Concomitant]
     Active Substance: PREDNISONE
     Route: 065
  10. ESOMEPRAZOLE [Concomitant]
     Active Substance: ESOMEPRAZOLE
     Route: 065
     Dates: start: 20171101
  11. ESOMEPRAZOLE [Concomitant]
     Active Substance: ESOMEPRAZOLE
     Route: 065
     Dates: start: 20171206
  12. ACTEMRA [Suspect]
     Active Substance: TOCILIZUMAB
     Route: 042
  13. PREDNISONE. [Concomitant]
     Active Substance: PREDNISONE
     Route: 065
     Dates: start: 20171206
  14. ASA [Concomitant]
     Active Substance: ASPIRIN
     Route: 065
     Dates: start: 20171211
  15. LOSARTAN. [Concomitant]
     Active Substance: LOSARTAN
     Route: 065
     Dates: start: 20171211
  16. LOSARTAN. [Concomitant]
     Active Substance: LOSARTAN
     Route: 065
     Dates: start: 20171206
  17. NEXIUM [Concomitant]
     Active Substance: ESOMEPRAZOLE MAGNESIUM
     Route: 065

REACTIONS (16)
  - White blood cell count decreased [Unknown]
  - Wheezing [Unknown]
  - Red blood cell count decreased [Unknown]
  - Pyrexia [Unknown]
  - Cough [Unknown]
  - Blood glucose increased [Unknown]
  - Cellulitis [Unknown]
  - Chills [Unknown]
  - Alanine aminotransferase increased [Recovered/Resolved]
  - Mean cell volume increased [Unknown]
  - Aspartate aminotransferase increased [Unknown]
  - Localised infection [Unknown]
  - Platelet count decreased [Unknown]
  - Blood alkaline phosphatase decreased [Unknown]
  - Blood creatinine decreased [Unknown]
  - Skin hyperpigmentation [Unknown]
